FAERS Safety Report 7991792-3 (Version None)
Quarter: 2011Q4

REPORT INFORMATION
  Report Type: 
  Country: None (occurrence: None)
  Receive Date: 20111219
  Receipt Date: 20111206
  Transmission Date: 20120403
  Serious: Yes (Hospitalization)
  Sender: FDA-Public Use
  Company Number: US-MYLANLABS-2010S1010513

PATIENT
  Age: 84 Year
  Sex: Male

DRUGS (16)
  1. BUPROPION HCL [Suspect]
     Dosage: 100MG TWICE DAILY
  2. GABAPENTIN [Concomitant]
     Route: 048
  3. ACETAMINOPHEN [Concomitant]
     Dosage: Q6H PRN
     Route: 048
  4. LIDOCAINE [Concomitant]
     Dosage: APPLY TO AFFECTED AREA
     Route: 061
  5. CITALOPRAM [Concomitant]
  6. ALLOPURINOL [Concomitant]
     Route: 048
  7. DONEPEZIL HCL [Concomitant]
     Route: 048
  8. LISINOPRIL [Concomitant]
     Route: 048
  9. MIRTAZAPINE [Concomitant]
     Route: 048
  10. OMEPRAZOLE [Concomitant]
     Route: 048
  11. NITROGLYCERIN [Concomitant]
     Indication: CHEST PAIN
     Dosage: DISSOLVE UNDER TONGUE AS NEEDED; MAX 3 DOSES
     Route: 060
  12. BUPROPION HCL [Suspect]
     Dosage: 150MG TWICE DAILY
  13. ASPIRIN [Concomitant]
     Route: 048
  14. HYDROCHLOROTHIAZIDE [Concomitant]
     Route: 048
  15. PRAVASTATIN [Concomitant]
     Route: 048
  16. ATENOLOL [Concomitant]
     Route: 048

REACTIONS (3)
  - TREMOR [None]
  - ATAXIA [None]
  - MENTAL STATUS CHANGES [None]
